FAERS Safety Report 10060381 (Version 1)
Quarter: 2014Q2

REPORT INFORMATION
  Report Type: Spontaneous
  Country: BR (occurrence: BR)
  Receive Date: 20140404
  Receipt Date: 20140404
  Transmission Date: 20141212
  Serious: Yes (Other)
  Sender: FDA-Public Use
  Company Number: BR-DSJP-DSU-2014-103851

PATIENT
  Sex: 0

DRUGS (2)
  1. OLMETEC HCT [Suspect]
     Indication: PRODUCT USED FOR UNKNOWN INDICATION
     Dosage: 40MG/12.5MG, QD
     Route: 048
  2. DIAMICRON [Concomitant]
     Indication: HYPERTENSION
     Dosage: UNK
     Dates: start: 2013

REACTIONS (1)
  - Vascular graft [Unknown]
